APPROVED DRUG PRODUCT: BRIMONIDINE TARTRATE
Active Ingredient: BRIMONIDINE TARTRATE
Strength: 0.2%
Dosage Form/Route: SOLUTION/DROPS;OPHTHALMIC
Application: A076260 | Product #001 | TE Code: AT
Applicant: BAUSCH AND LOMB PHARMACEUTICALS INC
Approved: May 28, 2003 | RLD: No | RS: Yes | Type: RX